FAERS Safety Report 21515926 (Version 2)
Quarter: 2022Q4

REPORT INFORMATION
  Report Type: Spontaneous
  Country: US (occurrence: US)
  Receive Date: 20221027
  Receipt Date: 20221116
  Transmission Date: 20230113
  Serious: Yes (Other)
  Sender: FDA-Public Use
  Company Number: US-TEVA-2022-US-2818711

PATIENT
  Age: 39 Year
  Sex: Male

DRUGS (2)
  1. GEMCITABINE [Suspect]
     Active Substance: GEMCITABINE
     Indication: NUT midline carcinoma
     Dosage: GEMCITABINE RECEIVED ON DAY 1, 15 OF 28 DAY CYCLE.
     Route: 065
  2. PACLITAXEL [Suspect]
     Active Substance: PACLITAXEL
     Indication: NUT midline carcinoma
     Dosage: PACLITAXEL RECEIVED ON DAY 1, 15 OF 28 DAY CYCLE.
     Route: 065

REACTIONS (4)
  - Febrile neutropenia [Unknown]
  - Neuropathy peripheral [Unknown]
  - Soft tissue infection [Unknown]
  - Drug ineffective for unapproved indication [Unknown]
